FAERS Safety Report 19890903 (Version 2)
Quarter: 2021Q3

REPORT INFORMATION
  Report Type: Report from Study
  Country: TR (occurrence: TR)
  Receive Date: 20210928
  Receipt Date: 20210929
  Transmission Date: 20211014
  Serious: Yes (Death, Hospitalization)
  Sender: FDA-Public Use
  Company Number: TR-CELGENEUS-TUR-20210906992

PATIENT
  Age: 79 Year
  Sex: Male

DRUGS (4)
  1. AZACITIDINE INJECTABLE [Suspect]
     Active Substance: AZACITIDINE
     Indication: ACUTE MYELOID LEUKAEMIA
     Route: 058
     Dates: start: 20191105
  2. JNJ?74494550 [Suspect]
     Active Substance: CUSATUZUMAB
     Dosage: 20 MG/KG
     Route: 041
     Dates: start: 20200109
  3. JNJ?74494550 [Suspect]
     Active Substance: CUSATUZUMAB
     Indication: ACUTE MYELOID LEUKAEMIA
     Dosage: 20 MG/KG
     Route: 041
     Dates: start: 20191107
  4. AZACITIDINE INJECTABLE [Suspect]
     Active Substance: AZACITIDINE
     Route: 058
     Dates: start: 20191216

REACTIONS (1)
  - Pneumonia [Fatal]

NARRATIVE: CASE EVENT DATE: 20200109
